FAERS Safety Report 15499666 (Version 1)
Quarter: 2018Q4

REPORT INFORMATION
  Report Type: Spontaneous
  Country: GB (occurrence: GB)
  Receive Date: 20181015
  Receipt Date: 20181015
  Transmission Date: 20190205
  Serious: Yes (Hospitalization)
  Sender: FDA-Public Use
  Company Number: GB-PFIZER INC-2018410510

PATIENT
  Age: 94 Year
  Sex: Female

DRUGS (1)
  1. MEROPENEM. [Suspect]
     Active Substance: MEROPENEM
     Indication: BACTERIAL SEPSIS
     Dosage: 3 G, 1X/DAY
     Route: 042

REACTIONS (2)
  - Rash macular [Recovered/Resolved]
  - Hypersensitivity [Unknown]
